FAERS Safety Report 10381122 (Version 1)
Quarter: 2014Q1

REPORT INFORMATION
  Report Type: Spontaneous
  Country: US (occurrence: None)
  Receive Date: 20140306
  Receipt Date: 20140306
  Transmission Date: 20141002
  Serious: Yes (Hospitalization)
  Sender: FDA-Public Use
  Company Number: 163-21880-13030365

PATIENT
  Age: 48 Year
  Sex: Male

DRUGS (11)
  1. REVLIMID (LENALIDOMIDE) (CAPSULES) [Suspect]
     Indication: PLASMA CELL MYELOMA
     Route: 048
     Dates: start: 20130114, end: 2013
  2. ACARBOSE [Concomitant]
  3. ATENOLOL (ATENOLOL) [Concomitant]
  4. COZAAR [Concomitant]
  5. ENALAPRIL MALEATE (ENALAPRIL MALEATE) [Concomitant]
  6. EXALGO [Concomitant]
  7. GLYBURIDE (GLIBENCLAMIDE) [Concomitant]
  8. LUNESTA [Concomitant]
  9. METFORMIN HCL [Concomitant]
  10. ASA (ACETYLSALICYLIC ACID) [Concomitant]
  11. DEXAMETHASONE (DEXAMETHASONE) [Concomitant]

REACTIONS (1)
  - Deep vein thrombosis [None]
